FAERS Safety Report 5569788-0 (Version None)
Quarter: 2007Q4

REPORT INFORMATION
  Report Type: 
  Country: None (occurrence: None)
  Receive Date: 20071218
  Receipt Date: 20071207
  Transmission Date: 20080405
  Serious: Yes (Hospitalization)
  Sender: FDA-Public Use
  Company Number: US021792

PATIENT
  Age: 12 Year
  Sex: Male
  Weight: 56.246 kg

DRUGS (2)
  1. PROVIGIL [Suspect]
     Indication: NARCOLEPSY
     Dosage: 100 MG QD ORAL
     Route: 048
     Dates: start: 20070901, end: 20071116
  2. ADDERALL 10 [Concomitant]

REACTIONS (16)
  - ABDOMINAL PAIN LOWER [None]
  - ABNORMAL BEHAVIOUR [None]
  - AGGRESSION [None]
  - EAR PAIN [None]
  - ERYTHEMA [None]
  - HALLUCINATION, AUDITORY [None]
  - HALLUCINATION, VISUAL [None]
  - PHARYNGOLARYNGEAL PAIN [None]
  - POLLAKIURIA [None]
  - PRURITUS GENERALISED [None]
  - PYREXIA [None]
  - RASH PRURITIC [None]
  - SKIN HAEMORRHAGE [None]
  - SUICIDAL IDEATION [None]
  - TIC [None]
  - TINNITUS [None]
